FAERS Safety Report 17774438 (Version 1)
Quarter: 2020Q2

REPORT INFORMATION
  Report Type: Report from Study
  Country: FR (occurrence: FR)
  Receive Date: 20200513
  Receipt Date: 20200513
  Transmission Date: 20200714
  Serious: Yes (Disabling)
  Sender: FDA-Public Use
  Company Number: FR-ASTRAZENECA-2020SE60805

PATIENT
  Age: 39 Year
  Sex: Female

DRUGS (2)
  1. APROVEL [Concomitant]
     Active Substance: IRBESARTAN
     Indication: HYPERTENSION
     Dosage: DAILY
     Route: 048
     Dates: start: 202003
  2. FASENRA [Suspect]
     Active Substance: BENRALIZUMAB
     Indication: ASTHMA
     Dosage: 1 INJECTION MONTHLY
     Route: 058
     Dates: start: 202001

REACTIONS (3)
  - Off label use [Not Recovered/Not Resolved]
  - Drug ineffective [Unknown]
  - Sleep apnoea syndrome [Not Recovered/Not Resolved]

NARRATIVE: CASE EVENT DATE: 202003
